FAERS Safety Report 10530553 (Version 2)
Quarter: 2014Q4

REPORT INFORMATION
  Report Type: Spontaneous
  Country: US (occurrence: US)
  Receive Date: 20141021
  Receipt Date: 20141021
  Transmission Date: 20150528
  Serious: Yes (Other)
  Sender: FDA-Public Use
  Company Number: US-PFIZER INC-2014246661

PATIENT
  Age: 84 Year
  Sex: Female

DRUGS (1)
  1. LYRICA [Suspect]
     Active Substance: PREGABALIN
     Dosage: 150 MG, 1X/DAY (AT BEDTIME)

REACTIONS (5)
  - Memory impairment [Unknown]
  - Cardiac disorder [Unknown]
  - Back disorder [Unknown]
  - Sleep disorder [Unknown]
  - Ulcer [Unknown]
